FAERS Safety Report 4894402-7 (Version None)
Quarter: 2006Q1

REPORT INFORMATION
  Report Type: 
  Country: None (occurrence: None)
  Receive Date: 20060127
  Receipt Date: 20051215
  Transmission Date: 20060701
  Serious: Yes (Hospitalization)
  Sender: FDA-Public Use
  Company Number: FR-BRISTOL-MYERS SQUIBB COMPANY-13261045

PATIENT
  Age: 73 Year
  Sex: Female

DRUGS (8)
  1. VASTEN TABS 20 MG [Suspect]
     Indication: HYPERCHOLESTEROLAEMIA
     Route: 048
     Dates: end: 20050403
  2. SOLU-MEDROL [Suspect]
     Route: 048
     Dates: end: 20050403
  3. ANAFRANIL [Suspect]
     Indication: DEPRESSION
     Route: 048
     Dates: end: 20050403
  4. ALDACTONE [Concomitant]
     Indication: HYPERTENSION
     Dosage: DOSAGE FORM = UNIT
     Route: 048
  5. LEVOTHYROX [Concomitant]
     Indication: HYPOTHYROIDISM
     Dosage: DOSAGE FORM = UG
     Route: 048
  6. FUROSEMIDE [Concomitant]
     Indication: HYPERTENSION
     Dosage: DOASGE FORM = UNITS
     Route: 048
  7. ROCEPHIN [Concomitant]
     Dates: start: 20050330, end: 20050403
  8. TAVANIC [Concomitant]
     Dates: start: 20050330, end: 20050403

REACTIONS (1)
  - AGRANULOCYTOSIS [None]
